FAERS Safety Report 6260776-8 (Version None)
Quarter: 2009Q3

REPORT INFORMATION
  Report Type: 
  Country: None (occurrence: None)
  Receive Date: 20090706
  Receipt Date: 20090626
  Transmission Date: 20100115
  Serious: Yes (Other)
  Sender: FDA-Public Use
  Company Number: TPA2009A01600

PATIENT
  Age: 5 Decade
  Sex: Female
  Weight: 58.9676 kg

DRUGS (2)
  1. KAPIDEX [Suspect]
     Indication: GASTROOESOPHAGEAL REFLUX DISEASE
     Dosage: 60 MG, UNKNOWN, PER ORAL
     Route: 048
     Dates: start: 20090101, end: 20090101
  2. PROTONIX [Concomitant]

REACTIONS (2)
  - RESPIRATORY DISTRESS [None]
  - THROAT TIGHTNESS [None]
